FAERS Safety Report 5360753-5 (Version None)
Quarter: 2007Q2

REPORT INFORMATION
  Report Type: 
  Country: None (occurrence: None)
  Receive Date: 20070618
  Receipt Date: 20070611
  Transmission Date: 20071010
  Serious: Yes (Other)
  Sender: FDA-Public Use
  Company Number: GBWYE485302AUG06

PATIENT
  Sex: Female
  Weight: 65 kg

DRUGS (5)
  1. VENLAFAXIINE HCL [Suspect]
     Indication: ANXIETY
     Route: 048
     Dates: start: 20060413, end: 20060606
  2. VENLAFAXIINE HCL [Suspect]
     Route: 048
     Dates: start: 20060607, end: 20060611
  3. VENLAFAXIINE HCL [Suspect]
     Route: 048
     Dates: start: 20060612, end: 20060621
  4. PROPRANOLOL [Concomitant]
     Indication: ANXIETY
     Route: 048
     Dates: start: 20060124
  5. PROPRANOLOL [Concomitant]
     Indication: BLOOD PRESSURE INCREASED

REACTIONS (16)
  - DIZZINESS [None]
  - DRUG INEFFECTIVE [None]
  - DRUG WITHDRAWAL SYNDROME [None]
  - FEELING HOT [None]
  - HYPERHIDROSIS [None]
  - INCREASED TENDENCY TO BRUISE [None]
  - LIVER FUNCTION TEST ABNORMAL [None]
  - MALAISE [None]
  - MENORRHAGIA [None]
  - NAUSEA [None]
  - PLATELET COUNT DECREASED [None]
  - SKIN EXFOLIATION [None]
  - SKIN LESION [None]
  - SOMNOLENCE [None]
  - TRICHORRHEXIS [None]
  - VOMITING [None]
